FAERS Safety Report 5330469-X (Version None)
Quarter: 2007Q2

REPORT INFORMATION
  Report Type: 
  Country: None (occurrence: None)
  Receive Date: 20070515
  Receipt Date: 20050329
  Transmission Date: 20071010
  Serious: Yes (Hospitalization)
  Sender: FDA-Public Use
  Company Number: 060006M03FRA

PATIENT
  Age: 27 Year
  Sex: Female
  Weight: 70 kg

DRUGS (1)
  1. SEROPHENE [Suspect]
     Indication: INFERTILITY
     Dosage: 50 MG, 1 IN 1 DAYS, ORAL
     Route: 048
     Dates: start: 20031201, end: 20031203

REACTIONS (3)
  - DRUG EXPOSURE DURING PREGNANCY [None]
  - ECTOPIC PREGNANCY [None]
  - METRORRHAGIA [None]
